FAERS Safety Report 8339304-9 (Version None)
Quarter: 2012Q2

REPORT INFORMATION
  Report Type: 
  Country: None (occurrence: None)
  Receive Date: 20120502
  Receipt Date: 20120426
  Transmission Date: 20120825
  Serious: Yes (Hospitalization, Other)
  Sender: FDA-Public Use
  Company Number: DAV-AE-MTX-12-40

PATIENT
  Age: 13 Year
  Sex: Male

DRUGS (2)
  1. METHOTREXATE [Suspect]
     Indication: ACUTE LYMPHOCYTIC LEUKAEMIA
     Dosage: 20 MG/M2 WK
  2. THIOGUANINE [Concomitant]

REACTIONS (6)
  - LYMPHOPENIA [None]
  - WEIGHT DECREASED [None]
  - PALLOR [None]
  - GASTROENTERITIS CRYPTOSPORIDIAL [None]
  - ASTHENIA [None]
  - NAUSEA [None]
